FAERS Safety Report 7387189-X (Version None)
Quarter: 2011Q1

REPORT INFORMATION
  Report Type: 
  Country: None (occurrence: None)
  Receive Date: 20110331
  Receipt Date: 20110323
  Transmission Date: 20110831
  Serious: Yes (Hospitalization)
  Sender: FDA-Public Use
  Company Number: B0708338A

PATIENT
  Sex: Female

DRUGS (1)
  1. MALARONE [Suspect]
     Indication: MALARIA PROPHYLAXIS
     Route: 048
     Dates: start: 20110301, end: 20110301

REACTIONS (6)
  - APHTHOUS STOMATITIS [None]
  - LIP OEDEMA [None]
  - NAUSEA [None]
  - ABDOMINAL PAIN [None]
  - ABDOMINAL DISTENSION [None]
  - ASTHENIA [None]
